FAERS Safety Report 15473765 (Version 2)
Quarter: 2018Q4

REPORT INFORMATION
  Report Type: Spontaneous
  Country: US (occurrence: US)
  Receive Date: 20181008
  Receipt Date: 20181129
  Transmission Date: 20190205
  Serious: Yes (Other)
  Sender: FDA-Public Use
  Company Number: US-GLAXOSMITHKLINE-US2018179190

PATIENT
  Age: 71 Year
  Sex: Female
  Weight: 116 kg

DRUGS (8)
  1. ADVAIR HFA [Concomitant]
     Active Substance: FLUTICASONE PROPIONATE\SALMETEROL XINAFOATE
  2. PREDNISONE. [Concomitant]
     Active Substance: PREDNISONE
  3. SINGULAIR [Concomitant]
     Active Substance: MONTELUKAST SODIUM
  4. ALLEGRA [Concomitant]
     Active Substance: FEXOFENADINE HYDROCHLORIDE
  5. FLONASE [Concomitant]
     Active Substance: FLUTICASONE PROPIONATE
  6. AUGMENTIN [Concomitant]
     Active Substance: AMOXICILLIN\CLAVULANATE POTASSIUM
  7. NUCALA [Suspect]
     Active Substance: MEPOLIZUMAB
     Indication: ASTHMA
     Dosage: 100 MG, UNK
     Dates: start: 20180927, end: 20180927
  8. SPIRIVA [Concomitant]
     Active Substance: TIOTROPIUM BROMIDE MONOHYDRATE

REACTIONS (8)
  - Somnolence [Recovering/Resolving]
  - Nausea [Recovering/Resolving]
  - Autoimmune disorder [Unknown]
  - Dyskinesia [Recovering/Resolving]
  - Chills [Recovering/Resolving]
  - Loss of consciousness [Recovering/Resolving]
  - Tremor [Recovering/Resolving]
  - Anaphylactic reaction [Unknown]

NARRATIVE: CASE EVENT DATE: 20180928
